FAERS Safety Report 4834297-0 (Version None)
Quarter: 2005Q4

REPORT INFORMATION
  Report Type: 
  Country: None (occurrence: None)
  Receive Date: 20051122
  Receipt Date: 20051115
  Transmission Date: 20060501
  Serious: Yes (Hospitalization)
  Sender: FDA-Public Use
  Company Number: US-ROCHE-424968

PATIENT
  Age: 82 Year
  Sex: Female
  Weight: 50.5 kg

DRUGS (6)
  1. DEMADEX [Suspect]
     Indication: DRUG USE FOR UNKNOWN INDICATION
     Route: 065
     Dates: start: 20050915, end: 20051003
  2. LEXAPRO [Suspect]
     Indication: DEPRESSION
     Route: 065
     Dates: start: 20050915, end: 20051003
  3. ZIAC [Suspect]
     Indication: DRUG USE FOR UNKNOWN INDICATION
     Route: 065
     Dates: start: 20040615, end: 20051003
  4. NORVASC [Concomitant]
  5. SEROQUEL [Concomitant]
  6. ASPIRIN, BABY [Concomitant]

REACTIONS (8)
  - ACUTE PRERENAL FAILURE [None]
  - ANAEMIA [None]
  - DEPRESSION [None]
  - HYPOVOLAEMIA [None]
  - INAPPROPRIATE ANTIDIURETIC HORMONE SECRETION [None]
  - METABOLIC ALKALOSIS [None]
  - PARANOIA [None]
  - TREMOR [None]
